FAERS Safety Report 10251177 (Version 1)
Quarter: 2014Q2

REPORT INFORMATION
  Report Type: Report from Study
  Country: US (occurrence: US)
  Receive Date: 20140620
  Receipt Date: 20140620
  Transmission Date: 20141212
  Serious: Yes (Other)
  Sender: FDA-Public Use
  Company Number: US-GILEAD-2014-0106342

PATIENT
  Sex: Male

DRUGS (1)
  1. EMTRICITABINE/TENOFOVIR DISOPROXIL FUMARATE [Suspect]
     Indication: HEPATITIS B
     Dosage: 500 MG, UNK
     Route: 065

REACTIONS (4)
  - Hepatic cirrhosis [Unknown]
  - Ascites [Unknown]
  - Oedema [Unknown]
  - Hepatitis B DNA assay positive [Unknown]
